FAERS Safety Report 7334377-4 (Version None)
Quarter: 2011Q1

REPORT INFORMATION
  Report Type: 
  Country: None (occurrence: None)
  Receive Date: 20110302
  Receipt Date: 20110302
  Transmission Date: 20110831
  Serious: Yes (Hospitalization)
  Sender: FDA-Public Use
  Company Number: None

PATIENT
  Age: 50 Year
  Sex: Male
  Weight: 112.2 kg

DRUGS (1)
  1. GLIPIZIDE [Suspect]
     Dosage: 20 MG BID PO
     Route: 048
     Dates: start: 20101021

REACTIONS (8)
  - MYALGIA [None]
  - POLLAKIURIA [None]
  - URINARY HESITATION [None]
  - HYPERGLYCAEMIA [None]
  - DYSPNOEA EXERTIONAL [None]
  - DRY MOUTH [None]
  - DIZZINESS [None]
  - HEADACHE [None]
